FAERS Safety Report 7402995-0 (Version None)
Quarter: 2011Q1

REPORT INFORMATION
  Report Type: 
  Country: None (occurrence: None)
  Receive Date: 20110331
  Receipt Date: 20110317
  Transmission Date: 20110831
  Serious: Yes (Life-Threatening, Other)
  Sender: FDA-Public Use
  Company Number: AUR-APL-2011-01019

PATIENT
  Age: 24 Year
  Sex: Female
  Weight: 65 kg

DRUGS (4)
  1. ACCUTANE [Concomitant]
  2. BUPROPION HCL [Concomitant]
  3. LAMOTRIGINE [Suspect]
     Indication: AFFECTIVE DISORDER
     Dosage: 25MG - -ORAL
     Route: 048
     Dates: start: 20110221, end: 20110303
  4. CITALOPRAM HYDROBROMIDE [Concomitant]

REACTIONS (2)
  - HYPERSENSITIVITY [None]
  - PHARYNGEAL OEDEMA [None]
